FAERS Safety Report 13952442 (Version 1)
Quarter: 2017Q3

REPORT INFORMATION
  Report Type: Spontaneous
  Country: US (occurrence: US)
  Receive Date: 20170911
  Receipt Date: 20170911
  Transmission Date: 20171128
  Serious: No
  Sender: FDA-Public Use
  Company Number: US-TEVA-726606ACC

PATIENT
  Age: 60 Year
  Sex: Female
  Weight: 52.21 kg

DRUGS (1)
  1. FENTANYL. [Suspect]
     Active Substance: FENTANYL
     Indication: PAIN
     Dosage: 50 MCG 5
     Dates: start: 2010

REACTIONS (5)
  - Muscular weakness [Unknown]
  - Withdrawal syndrome [Unknown]
  - Diarrhoea [Unknown]
  - Dysstasia [Unknown]
  - Hypokinesia [Unknown]

NARRATIVE: CASE EVENT DATE: 201609
